FAERS Safety Report 13825280 (Version 1)
Quarter: 2017Q3

REPORT INFORMATION
  Report Type: Spontaneous
  Country: JP (occurrence: JP)
  Receive Date: 20170802
  Receipt Date: 20170802
  Transmission Date: 20171127
  Serious: Yes (Hospitalization, Other)
  Sender: FDA-Public Use
  Company Number: JP-HTU-2017JP013257

PATIENT
  Age: 66 Year
  Sex: Male
  Weight: 63 kg

DRUGS (15)
  1. TAMSULOSIN HYDROCHLORIDE. [Concomitant]
     Active Substance: TAMSULOSIN HYDROCHLORIDE
     Indication: BENIGN PROSTATIC HYPERPLASIA
     Dosage: 0.2 MG, QD
     Route: 048
     Dates: start: 20170707
  2. AMLODIPINE [Concomitant]
     Active Substance: AMLODIPINE BESYLATE
     Indication: HYPERTENSION
     Dosage: 5 MG, QD
     Route: 048
  3. TEPRENONE [Concomitant]
     Active Substance: TEPRENONE
     Indication: GASTRITIS PROPHYLAXIS
     Dosage: UNK
     Route: 048
  4. DICLOFENAC [Concomitant]
     Active Substance: DICLOFENAC
     Indication: PAIN
     Route: 048
  5. DEXART [Suspect]
     Active Substance: DEXAMETHASONE SODIUM PHOSPHATE
     Dosage: 6.6 MG, QD
     Route: 042
     Dates: start: 20170628, end: 20170630
  6. NAVELBINE [Suspect]
     Active Substance: VINORELBINE TARTRATE
     Indication: LUNG ADENOCARCINOMA
     Dosage: 40 MG, QD
     Route: 042
     Dates: start: 20170627, end: 20170627
  7. MICARDIS [Concomitant]
     Active Substance: TELMISARTAN
     Indication: HYPERTENSION
     Dosage: 40 MG, QD
     Route: 048
     Dates: end: 20170711
  8. ALOXI [Suspect]
     Active Substance: PALONOSETRON HYDROCHLORIDE
     Indication: PROPHYLAXIS OF NAUSEA AND VOMITING
     Dosage: 0.75 MG, QD
     Route: 042
     Dates: start: 20170627, end: 20170627
  9. SENNOSIDE [Concomitant]
     Active Substance: SENNOSIDES
     Indication: CONSTIPATION
     Dosage: UNK
     Route: 048
     Dates: start: 20170628
  10. MAGNESIUM OXIDE. [Concomitant]
     Active Substance: MAGNESIUM OXIDE
     Indication: CONSTIPATION
     Dosage: 990 MG, QD
     Route: 048
     Dates: start: 20170706
  11. NIFEDIPINE. [Concomitant]
     Active Substance: NIFEDIPINE
     Indication: HYPERTENSION
     Dosage: 20 MG, QD
     Route: 048
  12. ZOLPIDEM [Concomitant]
     Active Substance: ZOLPIDEM\ZOLPIDEM TARTRATE
     Indication: INSOMNIA
     Dosage: UNK
     Route: 048
     Dates: start: 20170701
  13. DEXART [Suspect]
     Active Substance: DEXAMETHASONE SODIUM PHOSPHATE
     Indication: PROPHYLAXIS OF NAUSEA AND VOMITING
     Dosage: UNK UNK, QD
     Route: 042
     Dates: start: 20170627, end: 20170627
  14. CISPLATIN. [Suspect]
     Active Substance: CISPLATIN
     Indication: LUNG ADENOCARCINOMA
     Dosage: 135 MG, QD
     Route: 042
     Dates: start: 20170627, end: 20170627
  15. NAVELBINE [Suspect]
     Active Substance: VINORELBINE TARTRATE
     Dosage: 40 MG, QD
     Route: 042
     Dates: start: 20170704, end: 20170704

REACTIONS (1)
  - Inappropriate antidiuretic hormone secretion [Recovered/Resolved]

NARRATIVE: CASE EVENT DATE: 20170712
